FAERS Safety Report 5220691-5 (Version None)
Quarter: 2007Q1

REPORT INFORMATION
  Report Type: 
  Country: None (occurrence: None)
  Receive Date: 20070125
  Receipt Date: 20070125
  Transmission Date: 20070707
  Serious: Yes (Other)
  Sender: FDA-Public Use
  Company Number: None

PATIENT
  Sex: Female
  Weight: 12.3 kg

DRUGS (2)
  1. NEORAL [Suspect]
     Indication: DRUG DEPENDENCE
     Dosage: 0.3 ML  EVERY 12 HOURS  PO
     Route: 048
  2. NEORAL [Suspect]
     Indication: NEPHROTIC SYNDROME
     Dosage: 0.3 ML  EVERY 12 HOURS  PO
     Route: 048

REACTIONS (4)
  - BLOOD PRESSURE INCREASED [None]
  - MEDICATION ERROR [None]
  - OVERDOSE [None]
  - VOMITING [None]
